FAERS Safety Report 23446680 (Version 1)
Quarter: 2024Q1

REPORT INFORMATION
  Report Type: Spontaneous
  Country: US (occurrence: US)
  Receive Date: 20240126
  Receipt Date: 20240126
  Transmission Date: 20240409
  Serious: Yes (Other)
  Sender: FDA-Public Use
  Company Number: US-AMGEN-USASP2024014171

PATIENT
  Sex: Female

DRUGS (1)
  1. MVASI [Suspect]
     Active Substance: BEVACIZUMAB-AWWB
     Indication: Endometrial cancer
     Dosage: 1500 MILLIGRAM (MVASI 400 X 3 AND MVASI 100 X 3 VIALS)
     Route: 065

REACTIONS (2)
  - Colostomy closure [Unknown]
  - Colectomy [Unknown]
